FAERS Safety Report 6108382-X (Version None)
Quarter: 2009Q1

REPORT INFORMATION
  Report Type: 
  Country: None (occurrence: None)
  Receive Date: 20090309
  Receipt Date: 20090225
  Transmission Date: 20090719
  Serious: Yes (Other)
  Sender: FDA-Public Use
  Company Number: US-PFIZER INC-2009176840

PATIENT
  Sex: Male
  Weight: 110.66 kg

DRUGS (1)
  1. NEURONTIN [Suspect]
     Indication: BACK INJURY

REACTIONS (2)
  - HYPERTENSION [None]
  - MYASTHENIA GRAVIS [None]
